FAERS Safety Report 20963427 (Version 3)
Quarter: 2022Q3

REPORT INFORMATION
  Report Type: Spontaneous
  Country: US (occurrence: US)
  Receive Date: 20220615
  Receipt Date: 20220726
  Transmission Date: 20221027
  Serious: No
  Sender: FDA-Public Use
  Company Number: US-TEVA-2022-US-2038866

PATIENT
  Age: 48 Year
  Sex: Female

DRUGS (2)
  1. LORAZEPAM [Suspect]
     Active Substance: LORAZEPAM
     Indication: Anxiety
     Dosage: 6 MILLIGRAM DAILY;
     Route: 065
  2. PROPRANOLOL [Suspect]
     Active Substance: PROPRANOLOL HYDROCHLORIDE
     Indication: Anxiety
     Dosage: 30 MILLIGRAM DAILY;
     Route: 065

REACTIONS (7)
  - Headache [Unknown]
  - Weight increased [Unknown]
  - Gastric disorder [Unknown]
  - Depression [Unknown]
  - Drug ineffective [Unknown]
  - Product substitution issue [Unknown]
  - Vision blurred [Unknown]
